FAERS Safety Report 7281620-6 (Version None)
Quarter: 2011Q1

REPORT INFORMATION
  Report Type: 
  Country: None (occurrence: None)
  Receive Date: 20110208
  Receipt Date: 20110203
  Transmission Date: 20110831
  Serious: Yes (Death, Hospitalization)
  Sender: FDA-Public Use
  Company Number: PHFR2010GB05970

PATIENT
  Sex: Male

DRUGS (5)
  1. VENLAFAXINE [Concomitant]
     Indication: DEPRESSION
     Dosage: 225 MG, UNK
  2. CLOZARIL [Suspect]
     Indication: SCHIZOPHRENIA
     Dosage: UNK
     Route: 048
     Dates: start: 20080104
  3. EPILIM CHRONO [Concomitant]
     Indication: CONVULSION
     Dosage: 1200 MG, UNK
  4. CLOZARIL [Suspect]
     Dosage: 475 MG, UNK
     Route: 048
  5. METHADONE HYDROCHLORIDE [Concomitant]
     Indication: DRUG DEPENDENCE
     Dosage: 4 MG, UNK

REACTIONS (3)
  - BRONCHOPNEUMONIA [None]
  - ABDOMINAL PAIN [None]
  - CONSTIPATION [None]
